FAERS Safety Report 10533160 (Version 4)
Quarter: 2014Q4

REPORT INFORMATION
  Report Type: Spontaneous
  Country: DE (occurrence: DE)
  Receive Date: 20141022
  Receipt Date: 20141121
  Transmission Date: 20150529
  Serious: Yes (Hospitalization, Other)
  Sender: FDA-Public Use
  Company Number: DE-AMGEN-DEUSP2014080385

PATIENT
  Age: 51 Year
  Sex: Female
  Weight: 80 kg

DRUGS (1)
  1. PROLIA [Suspect]
     Active Substance: DENOSUMAB
     Indication: OSTEOPOROSIS
     Dosage: UNK UNK, Q6MO
     Route: 058
     Dates: start: 20110307

REACTIONS (4)
  - Cutaneous sarcoidosis [Recovered/Resolved]
  - Bone density decreased [Unknown]
  - Pulmonary oedema [Unknown]
  - Herpes simplex [Unknown]

NARRATIVE: CASE EVENT DATE: 201304
